FAERS Safety Report 12632803 (Version 2)
Quarter: 2016Q3

REPORT INFORMATION
  Report Type: Spontaneous
  Country: US (occurrence: US)
  Receive Date: 20160808
  Receipt Date: 20160808
  Transmission Date: 20161109
  Serious: No
  Sender: FDA-Public Use
  Company Number: US-BEH-2015057013

PATIENT
  Sex: Female
  Weight: 87 kg

DRUGS (14)
  1. ATENOLOL. [Concomitant]
     Active Substance: ATENOLOL
  2. MICARDIS [Concomitant]
     Active Substance: TELMISARTAN
  3. FENOFIBRATE. [Concomitant]
     Active Substance: FENOFIBRATE
  4. LEXAPRO [Concomitant]
     Active Substance: ESCITALOPRAM OXALATE
  5. DAILY MULTIPLE VITAMIN [Concomitant]
  6. PLAVIX [Concomitant]
     Active Substance: CLOPIDOGREL BISULFATE
  7. HIZENTRA [Suspect]
     Active Substance: HUMAN IMMUNOGLOBULIN G
     Route: 058
  8. NEXIUM [Concomitant]
     Active Substance: ESOMEPRAZOLE MAGNESIUM
  9. HIZENTRA [Suspect]
     Active Substance: HUMAN IMMUNOGLOBULIN G
     Indication: IMMUNODEFICIENCY COMMON VARIABLE
     Dates: start: 20110415
  10. LIPITOR [Concomitant]
     Active Substance: ATORVASTATIN CALCIUM
  11. HIZENTRA [Suspect]
     Active Substance: HUMAN IMMUNOGLOBULIN G
     Route: 058
  12. HIZENTRA [Suspect]
     Active Substance: HUMAN IMMUNOGLOBULIN G
     Indication: HYPER IGM SYNDROME
     Route: 058
  13. WARFARIN SODIUM. [Concomitant]
     Active Substance: WARFARIN SODIUM
  14. VITAMIN C [Concomitant]
     Active Substance: ASCORBIC ACID

REACTIONS (2)
  - Fall [Unknown]
  - Concussion [Unknown]
